FAERS Safety Report 8932291 (Version 8)
Quarter: 2014Q1

REPORT INFORMATION
  Report Type: Report from Study
  Country: PT (occurrence: PT)
  Receive Date: 20121128
  Receipt Date: 20140221
  Transmission Date: 20141002
  Serious: Yes (Death, Hospitalization, Other)
  Sender: FDA-Public Use
  Company Number: PT-CELGENEUS-130-C5013-12112193

PATIENT
  Age: 84 Year
  Sex: Male
  Weight: 52.5 kg

DRUGS (10)
  1. CC-5013 [Suspect]
     Indication: CHRONIC LYMPHOCYTIC LEUKAEMIA
     Dosage: 25 MILLIGRAM
     Route: 048
     Dates: start: 20120713, end: 20121030
  2. CC-5013 [Suspect]
     Route: 048
     Dates: end: 20121214
  3. ATORVASTATIN [Concomitant]
     Indication: DYSLIPIDAEMIA
     Dosage: 10 MILLIGRAM
     Route: 048
     Dates: start: 20050101
  4. ENALAPRIL [Concomitant]
     Indication: HYPERTENSION
     Dosage: 5 MILLIGRAM
     Route: 048
     Dates: start: 20070101
  5. OMEPRAZOLE [Concomitant]
     Indication: PROPHYLAXIS
     Dosage: 40 MILLIGRAM
     Route: 048
     Dates: start: 20120713, end: 20130117
  6. PIRACETAM [Concomitant]
     Indication: PAIN
     Dosage: 1.2 GRAM
     Route: 048
     Dates: start: 20090701
  7. BACTRIM [Concomitant]
     Indication: PROPHYLAXIS
     Dosage: 860 MILLIGRAM
     Route: 048
     Dates: start: 20120713
  8. MEGESTROL [Concomitant]
     Indication: DECREASED APPETITE
     Dosage: 160 MILLIGRAM
     Route: 048
     Dates: start: 20121123
  9. FUROSEMIDE [Concomitant]
     Indication: POLYURIA
     Dosage: 40 MILLIGRAM
     Route: 048
     Dates: start: 20121214, end: 20130117
  10. MAGNESIUM [Concomitant]
     Indication: HYPOMAGNESAEMIA
     Dosage: 12.26 MILLIGRAM
     Route: 048
     Dates: start: 20121214

REACTIONS (1)
  - Small intestine carcinoma [Fatal]
